FAERS Safety Report 11714232 (Version 1)
Quarter: 2015Q4

REPORT INFORMATION
  Report Type: Other
  Country: None (occurrence: US)
  Receive Date: 20151109
  Receipt Date: 20151109
  Transmission Date: 20160304
  Serious: No
  Sender: FDA-Public Use
  Company Number: US-NSR_01740_2014

PATIENT
  Sex: Female
  Weight: 105 kg

DRUGS (2)
  1. SIMVASTATIN. [Concomitant]
     Active Substance: SIMVASTATIN
     Dosage: DF
  2. ALLOPURINOL. [Suspect]
     Active Substance: ALLOPURINOL
     Indication: GOUT
     Dosage: TOOK THE MEDICATION OFF AND ON FROM 1996 TO 2014
     Route: 048
     Dates: start: 1996, end: 2014

REACTIONS (1)
  - Alopecia [Not Recovered/Not Resolved]

NARRATIVE: CASE EVENT DATE: 1996
